FAERS Safety Report 8308561-7 (Version None)
Quarter: 2012Q2

REPORT INFORMATION
  Report Type: 
  Country: None (occurrence: None)
  Receive Date: 20120424
  Receipt Date: 20120411
  Transmission Date: 20120825
  Serious: Yes (Congenital Anomaly)
  Sender: FDA-Public Use
  Company Number: US-ELI_LILLY_AND_COMPANY-US201204003834

PATIENT
  Sex: Female

DRUGS (1)
  1. PROZAC [Suspect]
     Dosage: UNK, QD
     Route: 064
     Dates: end: 19970501

REACTIONS (10)
  - RIB DEFORMITY [None]
  - HIP DYSPLASIA [None]
  - KIDNEY MALFORMATION [None]
  - CERVICAL RIB [None]
  - SPINA BIFIDA OCCULTA [None]
  - CONGENITAL ELEVATION OF SCAPULA [None]
  - TETHERED CORD SYNDROME [None]
  - CONGENITAL SCOLIOSIS [None]
  - DEFORMITY THORAX [None]
  - FOETAL EXPOSURE DURING PREGNANCY [None]
